FAERS Safety Report 24784875 (Version 1)
Quarter: 2024Q4

REPORT INFORMATION
  Report Type: Spontaneous
  Country: DE (occurrence: DE)
  Receive Date: 20241228
  Receipt Date: 20241228
  Transmission Date: 20250115
  Serious: Yes (Other)
  Sender: UCB
  Company Number: None

PATIENT
  Age: 14 Year
  Sex: Male
  Weight: 94 kg

DRUGS (5)
  1. LEVETIRACETAM [Suspect]
     Active Substance: LEVETIRACETAM
     Indication: Product used for unknown indication
  2. VALPROIC ACID [Suspect]
     Active Substance: VALPROIC ACID
     Indication: Epilepsy
     Dosage: 600 MILLIGRAM, 2X/DAY (BID)
     Route: 048
     Dates: start: 20200808
  3. VALPROIC ACID [Suspect]
     Active Substance: VALPROIC ACID
     Dosage: ACCORDING TO THE PATIENT^S MOTHER: ^TOTALLY OVERDOSED^
     Dates: start: 2016
  4. LAMOTRIGINE 1A [Concomitant]
     Indication: Epilepsy
     Dosage: 100 MILLIGRAM, 2X/DAY (BID)
     Route: 048
     Dates: start: 20200808
  5. FYCOMPA [Concomitant]
     Active Substance: PERAMPANEL
     Indication: Epilepsy
     Dosage: IN THE EVENING, ONCE DAILY (QD)
     Dates: start: 2019

REACTIONS (7)
  - Seizure [Unknown]
  - Prescribed overdose [Unknown]
  - Drug ineffective [Unknown]
  - Underdose [Unknown]
  - Weight increased [Unknown]
  - Skin fissures [Unknown]
  - Aggression [Recovered/Resolved]
